FAERS Safety Report 6930178-7 (Version None)
Quarter: 2010Q3

REPORT INFORMATION
  Report Type: 
  Country: None (occurrence: None)
  Receive Date: 20100818
  Receipt Date: 20100728
  Transmission Date: 20110219
  Serious: No
  Sender: FDA-Public Use
  Company Number: US-PFIZER INC-2010095760

PATIENT
  Sex: Female
  Weight: 68.027 kg

DRUGS (3)
  1. LIPITOR [Suspect]
     Indication: BLOOD CHOLESTEROL INCREASED
     Dosage: 40 MG, DAILY
     Route: 048
     Dates: start: 20100701, end: 20100727
  2. METOPROLOL [Interacting]
     Indication: CARDIOMYOPATHY
     Dosage: 100 MG, UNK
     Route: 048
     Dates: start: 20100701
  3. METOPROLOL [Concomitant]
     Dosage: UNK
     Route: 048

REACTIONS (3)
  - DRUG INTERACTION [None]
  - HEADACHE [None]
  - MALAISE [None]
